FAERS Safety Report 15030278 (Version 2)
Quarter: 2019Q2

REPORT INFORMATION
  Report Type: Spontaneous
  Country: US (occurrence: US)
  Receive Date: 20180619
  Receipt Date: 20190510
  Transmission Date: 20190711
  Serious: No
  Sender: FDA-Public Use
  Company Number: US-PFIZER INC-2018243657

PATIENT
  Age: 61 Year
  Sex: Female
  Weight: 55.34 kg

DRUGS (3)
  1. ADVIL ALLERGY AND CONGESTION RELIEF [Suspect]
     Active Substance: CHLORPHENIRAMINE MALEATE\IBUPROFEN\PHENYLEPHRINE HYDROCHLORIDE
     Indication: NASAL CONGESTION
  2. ADVIL ALLERGY AND CONGESTION RELIEF [Suspect]
     Active Substance: CHLORPHENIRAMINE MALEATE\IBUPROFEN\PHENYLEPHRINE HYDROCHLORIDE
     Indication: SINUS CONGESTION
  3. ADVIL ALLERGY AND CONGESTION RELIEF [Suspect]
     Active Substance: CHLORPHENIRAMINE MALEATE\IBUPROFEN\PHENYLEPHRINE HYDROCHLORIDE
     Indication: HYPERSENSITIVITY
     Dosage: 1 TABLET (200MG/10MG), UNK
     Dates: end: 20180611

REACTIONS (3)
  - Dizziness [Recovered/Resolved]
  - Paraesthesia [Recovered/Resolved]
  - Tremor [Recovered/Resolved]

NARRATIVE: CASE EVENT DATE: 20180611
